FAERS Safety Report 5312261-5 (Version None)
Quarter: 2007Q2

REPORT INFORMATION
  Report Type: 
  Country: None (occurrence: None)
  Receive Date: 20070430
  Receipt Date: 20060822
  Transmission Date: 20071010
  Serious: No
  Sender: FDA-Public Use
  Company Number: 2006UW16688

PATIENT
  Age: 73 Year
  Sex: Female
  Weight: 81.2 kg

DRUGS (8)
  1. NEXIUM [Suspect]
     Indication: GASTROOESOPHAGEAL REFLUX DISEASE
     Route: 048
  2. SYNTHROID [Concomitant]
  3. WELLBUTRIN [Concomitant]
  4. ARIMIDEX [Concomitant]
     Route: 048
  5. ROCITROL [Concomitant]
  6. DIGOXIN [Concomitant]
  7. COUMADIN [Concomitant]
  8. TOPROL-XL [Concomitant]
     Route: 048

REACTIONS (1)
  - BLINDNESS TRANSIENT [None]
